FAERS Safety Report 8588789-1 (Version None)
Quarter: 2012Q3

REPORT INFORMATION
  Report Type: 
  Country: None (occurrence: None)
  Receive Date: 20120803
  Receipt Date: 20120803
  Transmission Date: 20120928
  Serious: Yes (Other)
  Sender: FDA-Public Use
  Company Number: None

PATIENT
  Sex: Female
  Weight: 58.9676 kg

DRUGS (2)
  1. DOXYCYCLINE [Suspect]
     Indication: ACNE
     Dosage: 100 MG AND 150 MG TWICE DAILY PO
     Route: 048
     Dates: start: 20050201, end: 20070801
  2. BACTRIM [Suspect]
     Indication: ACNE
     Dosage: PO
     Route: 048
     Dates: start: 20070801, end: 20100901

REACTIONS (4)
  - DISBACTERIOSIS [None]
  - HYPOTHYROIDISM [None]
  - ASTHMA [None]
  - POLYCYSTIC OVARIES [None]
